FAERS Safety Report 4467875-1 (Version None)
Quarter: 2004Q4

REPORT INFORMATION
  Report Type: 
  Country: None (occurrence: None)
  Receive Date: 20041004
  Receipt Date: 20040916
  Transmission Date: 20050328
  Serious: Yes (Hospitalization)
  Sender: FDA-Public Use
  Company Number: DSA_24995_2004

PATIENT
  Age: 81 Year
  Sex: Female

DRUGS (5)
  1. ENALAPRIL MALEATE [Suspect]
     Indication: HYPERTENSION
     Dosage: 5 MG QD PO
     Route: 048
     Dates: end: 20030630
  2. LISINOPRIL [Suspect]
     Indication: HYPERTENSION
     Dosage: 20 MG BID PO
     Route: 048
     Dates: end: 20030630
  3. FUROSEMIDE/SPIRONOLACTONE [Suspect]
     Indication: HYPERTENSION
     Dosage: 1 TAB Q DAY PO
     Route: 048
     Dates: end: 20030630
  4. ^NSAI^ (NSAID) [Suspect]
     Indication: BACK PAIN
     Dosage: DF UNK PO
     Route: 048
     Dates: end: 20030630
  5. METFORMIN HCL [Concomitant]

REACTIONS (4)
  - DEHYDRATION [None]
  - HYPERGLYCAEMIA [None]
  - HYPERKALAEMIA [None]
  - RENAL FAILURE ACUTE [None]
